FAERS Safety Report 13262088 (Version 1)
Quarter: 2017Q1

REPORT INFORMATION
  Report Type: Spontaneous
  Country: US (occurrence: US)
  Receive Date: 20170222
  Receipt Date: 20170222
  Transmission Date: 20170428
  Serious: No
  Sender: FDA-Public Use
  Company Number: US-AMNEAL PHARMACEUTICALS-2016AMN00656

PATIENT
  Age: 51 Year
  Sex: Male
  Weight: 81.63 kg

DRUGS (2)
  1. PRODUCT FROM OTHER MANUFACTURER [Concomitant]
     Dosage: UNK
  2. METFORMIN HYDROCHLORIDE. [Suspect]
     Active Substance: METFORMIN HYDROCHLORIDE
     Indication: DIABETES MELLITUS
     Dosage: 500 MG, 4X/DAY
     Route: 048
     Dates: start: 201605

REACTIONS (3)
  - Malaise [Recovered/Resolved]
  - Product substitution issue [Unknown]
  - Product formulation issue [Unknown]

NARRATIVE: CASE EVENT DATE: 201605
